FAERS Safety Report 12341400 (Version 1)
Quarter: 2016Q2

REPORT INFORMATION
  Report Type: Spontaneous
  Country: FR (occurrence: FR)
  Receive Date: 20160506
  Receipt Date: 20160506
  Transmission Date: 20160815
  Serious: Yes (Hospitalization)
  Sender: FDA-Public Use
  Company Number: FR-PFIZER INC-2016237629

PATIENT
  Age: 81 Year
  Sex: Male

DRUGS (11)
  1. METFORMINE [Suspect]
     Active Substance: METFORMIN HYDROCHLORIDE
     Dosage: 500 MG, 2X/DAY
     Route: 048
     Dates: start: 201506, end: 20160311
  2. FLUOXETINE HYDROCHLORIDE. [Suspect]
     Active Substance: FLUOXETINE HYDROCHLORIDE
     Dosage: 20 MG, 1X/DAY
     Route: 048
     Dates: start: 2008, end: 20160311
  3. DOLIPRANE [Suspect]
     Active Substance: ACETAMINOPHEN
     Dosage: 1000 MG, 3X/DAY
     Route: 048
     Dates: start: 201509
  4. IXPRIM [Suspect]
     Active Substance: ACETAMINOPHEN\TRAMADOL HYDROCHLORIDE
     Dosage: TRAMADOL HYDROCHLORIDE 37.5 MG/ PARACETAMOL: 325 MG; 6 DF, 1X/DAY
     Route: 048
     Dates: start: 201506
  5. TRANSIPEG /00754501/ [Suspect]
     Active Substance: POLYETHYLENE GLYCOL 3350
     Dosage: 5.9 G, 1X/DAY
     Route: 048
     Dates: start: 201510, end: 20160311
  6. TAHOR [Suspect]
     Active Substance: ATORVASTATIN CALCIUM
     Dosage: 80 MG, 1X/DAY
     Route: 048
     Dates: start: 200810, end: 20160311
  7. IXPRIM [Suspect]
     Active Substance: ACETAMINOPHEN\TRAMADOL HYDROCHLORIDE
     Dosage: 4 TO 8 TABLETS A DAY
     Route: 048
     Dates: start: 201602, end: 201602
  8. IXPRIM [Suspect]
     Active Substance: ACETAMINOPHEN\TRAMADOL HYDROCHLORIDE
     Dosage: 6 DF, 1X/DAY
     Route: 048
     Dates: end: 201603
  9. IXPRIM [Suspect]
     Active Substance: ACETAMINOPHEN\TRAMADOL HYDROCHLORIDE
     Dosage: 6 DF, DAILY
     Route: 048
     Dates: start: 201602, end: 201602
  10. TEMESTA /00273201/ [Suspect]
     Active Substance: LORAZEPAM
     Dosage: 3 MG, 1X/DAY
     Route: 048
     Dates: end: 20160311
  11. COVERSYL /00790702/ [Suspect]
     Active Substance: PERINDOPRIL
     Dosage: 2.5 MG, 1X/DAY
     Route: 048
     Dates: start: 201506, end: 20160311

REACTIONS (2)
  - Acute prerenal failure [Recovered/Resolved]
  - Hepatocellular injury [Recovered/Resolved]

NARRATIVE: CASE EVENT DATE: 20160310
